FAERS Safety Report 22322966 (Version 1)
Quarter: 2023Q2

REPORT INFORMATION
  Report Type: Spontaneous
  Country: US (occurrence: US)
  Receive Date: 20230516
  Receipt Date: 20230516
  Transmission Date: 20230721
  Serious: No
  Sender: FDA-Public Use
  Company Number: AXS2022-302

PATIENT
  Age: 27 Year
  Sex: Female

DRUGS (15)
  1. SUNOSI [Suspect]
     Active Substance: SOLRIAMFETOL
     Indication: Obstructive sleep apnoea syndrome
     Route: 048
  2. SUNOSI [Suspect]
     Active Substance: SOLRIAMFETOL
     Indication: Narcolepsy
  3. PROVENTIL [Concomitant]
     Active Substance: ALBUTEROL
     Indication: Product used for unknown indication
     Dates: start: 20220915
  4. AUGMENTIN [Concomitant]
     Active Substance: AMOXICILLIN\CLAVULANATE POTASSIUM
     Indication: Product used for unknown indication
     Dosage: TAKE 1 TABLET BY MOUTH 2 (TWO) TIMES A DAY FOR 10 DAYS.
     Route: 048
     Dates: start: 20221023, end: 20221102
  5. paragard intrauterine copper IUD [Concomitant]
     Indication: Product used for unknown indication
     Dosage: 1 EACH BY INTRAUTERINE ROUTE ONCE. - INTRAUTERINE
  6. FLEXERIL [Concomitant]
     Active Substance: CYCLOBENZAPRINE HYDROCHLORIDE
     Indication: Product used for unknown indication
     Dosage: TAKE 1 TABLET BY MOUTH 3 (THREE) TIMES A DAY AS NEEDED
     Route: 048
     Dates: start: 20200512
  7. CYMBALTA [Concomitant]
     Active Substance: DULOXETINE HYDROCHLORIDE
     Dosage: TAKE 30 MG BY MOUTH DAILY
     Route: 048
  8. PEPCID [Concomitant]
     Active Substance: FAMOTIDINE
     Indication: Product used for unknown indication
     Dates: start: 20221016
  9. GLUCOPHAGE [Concomitant]
     Active Substance: METFORMIN HYDROCHLORIDE
     Indication: Product used for unknown indication
     Dosage: TAKE 500 MG BY MOUTH 2 (TWO) TIMES A DAY.
     Route: 048
     Dates: start: 20211222
  10. NAPROSYN [Concomitant]
     Active Substance: NAPROXEN
     Dosage: 500 MG BY MOUTH EVERY 12 (TWELVE) HOURS AS NEEDED
     Route: 048
  11. PRILOSEC [Concomitant]
     Active Substance: OMEPRAZOLE MAGNESIUM
     Indication: Product used for unknown indication
     Dosage: TAKE 1 CAPSULE (40 MG TOTAL) BY MOUTH DAILY.
     Route: 048
     Dates: start: 20220701, end: 20221024
  12. DELTASONE [Concomitant]
     Active Substance: PREDNISONE
     Indication: Product used for unknown indication
     Dosage: TAKE 2 TABLETS (40 MG TOTAL) BY MOUTH EVERY MORNING FOR 5 DAYS
     Route: 048
     Dates: start: 20221023, end: 20221028
  13. Phenergan-DM [Concomitant]
     Indication: Product used for unknown indication
     Dosage: 6.2545 MG/SML SYRUP
     Route: 048
     Dates: start: 20221023, end: 20221030
  14. ALBUTEROL [Concomitant]
     Active Substance: ALBUTEROL
     Indication: Product used for unknown indication
     Dosage: UNK
  15. XYWAV [Concomitant]
     Active Substance: CALCIUM OXYBATE\MAGNESIUM OXYBATE\POTASSIUM OXYBATE\SODIUM OXYBATE
     Dosage: 4.5G NIGHTLY IN DIVIDED DOSES, TITRATING TO 6GMS NIGHTLY (DIVIDED) AFTER 1 WEEK. PT WILL STAY AT 6G

REACTIONS (1)
  - Drug ineffective [Unknown]
